FAERS Safety Report 7176283-4 (Version None)
Quarter: 2010Q4

REPORT INFORMATION
  Report Type: 
  Country: None (occurrence: None)
  Receive Date: 20101220
  Receipt Date: 20101207
  Transmission Date: 20110411
  Serious: Yes (Hospitalization)
  Sender: FDA-Public Use
  Company Number: US-CELGENEUS-06-0005-1019

PATIENT
  Sex: Male

DRUGS (11)
  1. ROMIDEPSIN [Suspect]
     Indication: PROSTATE CANCER
     Route: 051
     Dates: start: 20100212, end: 20100319
  2. PROTONIX [Concomitant]
     Route: 065
  3. MS CONTIN [Concomitant]
     Route: 065
  4. MULTI-VITAMINS [Concomitant]
     Route: 065
  5. ZOFRAN [Concomitant]
     Route: 065
  6. CALCIUM [Concomitant]
     Route: 065
  7. TUMS [Concomitant]
     Route: 065
  8. SENOKOT [Concomitant]
     Route: 065
  9. PREDNISONE [Concomitant]
     Route: 065
  10. KYTRIL [Concomitant]
     Route: 065
  11. CARAFATE [Concomitant]
     Route: 065

REACTIONS (10)
  - ARTHRALGIA [None]
  - ASTHENIA [None]
  - COUGH [None]
  - FATIGUE [None]
  - FEBRILE NEUTROPENIA [None]
  - JOINT SWELLING [None]
  - LETHARGY [None]
  - LUNG INFILTRATION [None]
  - PLATELET COUNT DECREASED [None]
  - WHITE BLOOD CELL COUNT DECREASED [None]
